FAERS Safety Report 8918598 (Version 2)
Quarter: 2012Q4

REPORT INFORMATION
  Report Type: 
  Country: US (occurrence: US)
  Receive Date: 20121120
  Receipt Date: 20121205
  Transmission Date: 20130627
  Serious: No
  Sender: FDA-Public Use
  Company Number: US-ASTRAZENECA-2012SE19377

PATIENT
  Age: 71 Year
  Sex: Female

DRUGS (3)
  1. NEXIUM [Suspect]
     Dosage: GENERIC
     Route: 048
  2. NEXIUM [Suspect]
     Route: 048
  3. PRILOSEC OTC [Suspect]
     Route: 048

REACTIONS (5)
  - Osteoporosis [Unknown]
  - Gastrooesophageal reflux disease [Unknown]
  - Appetite disorder [Unknown]
  - Drug dose omission [Unknown]
  - Drug ineffective [Unknown]
